FAERS Safety Report 23565484 (Version 1)
Quarter: 2024Q1

REPORT INFORMATION
  Report Type: Spontaneous
  Country: US (occurrence: None)
  Receive Date: 20240223
  Receipt Date: 20240223
  Transmission Date: 20240410
  Serious: No
  Sender: FDA-Public Use
  Company Number: None

PATIENT
  Age: 48 Year
  Sex: Male
  Weight: 97.52 kg

DRUGS (7)
  1. HUMIRA [Suspect]
     Active Substance: ADALIMUMAB
     Dosage: OTHER QUANTITY : 1 INJECTION;?OTHER FREQUENCY : ONCE EVERY 2 WEEKS;??DURATION OF DRUG ADMINISTRATION
     Route: 058
     Dates: start: 20221121, end: 20230921
  2. FOLIC ACID [Concomitant]
     Active Substance: FOLIC ACID
  3. LISINOPRIL [Concomitant]
     Active Substance: LISINOPRIL
  4. LEFLUNOMIDE [Concomitant]
     Active Substance: LEFLUNOMIDE
  5. PERCOCET [Concomitant]
     Active Substance: ACETAMINOPHEN\OXYCODONE HYDROCHLORIDE
  6. ZORYVE [Concomitant]
     Active Substance: ROFLUMILAST
  7. CLOBETASOL PROPIONATE [Concomitant]
     Active Substance: CLOBETASOL PROPIONATE

REACTIONS (2)
  - Palmoplantar pustulosis [None]
  - Therapy cessation [None]

NARRATIVE: CASE EVENT DATE: 20231001
